FAERS Safety Report 6613881-8 (Version None)
Quarter: 2010Q1

REPORT INFORMATION
  Report Type: 
  Country: None (occurrence: None)
  Receive Date: 20100304
  Receipt Date: 20100301
  Transmission Date: 20100710
  Serious: Yes (Hospitalization)
  Sender: FDA-Public Use
  Company Number: A0847621A

PATIENT
  Age: 58 Year
  Sex: Female
  Weight: 85.5 kg

DRUGS (1)
  1. AVANDIA [Suspect]
     Indication: TYPE 2 DIABETES MELLITUS
     Dosage: 4MG TWICE PER DAY
     Route: 048
     Dates: start: 20060101, end: 20080101

REACTIONS (3)
  - CARDIAC FAILURE CONGESTIVE [None]
  - FALL [None]
  - MYOCARDIAL INFARCTION [None]
